FAERS Safety Report 25330378 (Version 1)
Quarter: 2025Q2

REPORT INFORMATION
  Report Type: Spontaneous
  Country: JP (occurrence: JP)
  Receive Date: 20250519
  Receipt Date: 20250519
  Transmission Date: 20250717
  Serious: Yes (Hospitalization)
  Sender: ARGENX BVBA
  Company Number: JP-ARGENX-2023-ARGX-JP002035AA

PATIENT

DRUGS (10)
  1. VYVGART [Suspect]
     Active Substance: EFGARTIGIMOD ALFA-FCAB
     Indication: Myasthenia gravis
     Route: 042
     Dates: start: 20220728, end: 20220818
  2. VYVGART [Suspect]
     Active Substance: EFGARTIGIMOD ALFA-FCAB
     Route: 042
     Dates: start: 20221221, end: 20230111
  3. VYVGART [Suspect]
     Active Substance: EFGARTIGIMOD ALFA-FCAB
     Route: 042
     Dates: start: 20240125, end: 20240215
  4. AMBENONIUM [Concomitant]
     Active Substance: AMBENONIUM
     Indication: Myasthenia gravis
     Route: 048
     Dates: start: 20220524
  5. AMBENONIUM [Concomitant]
     Active Substance: AMBENONIUM
     Route: 065
  6. AMOXICILLIN [Concomitant]
     Active Substance: AMOXICILLIN
     Indication: Product used for unknown indication
     Route: 048
     Dates: start: 20220608, end: 202208
  7. AZILSARTAN KAMEDOXOMIL [Concomitant]
     Active Substance: AZILSARTAN KAMEDOXOMIL
     Indication: Product used for unknown indication
     Route: 048
  8. PREDNISOLONE [Concomitant]
     Active Substance: PREDNISOLONE
     Indication: Myasthenia gravis
     Route: 048
     Dates: start: 20221110
  9. PROGRAF [Concomitant]
     Active Substance: TACROLIMUS
     Indication: Myasthenia gravis
     Route: 048
     Dates: start: 20220714
  10. TACROLIMUS [Concomitant]
     Active Substance: TACROLIMUS
     Indication: Myasthenia gravis
     Route: 065

REACTIONS (5)
  - Symptom recurrence [Recovered/Resolved]
  - Dysphagia [Recovered/Resolved]
  - Symptom recurrence [Recovering/Resolving]
  - Therapy non-responder [Unknown]
  - Therapeutic product effect incomplete [Unknown]

NARRATIVE: CASE EVENT DATE: 20221201
